FAERS Safety Report 5480776-5 (Version None)
Quarter: 2007Q4

REPORT INFORMATION
  Report Type: 
  Country: None (occurrence: None)
  Receive Date: 20071009
  Receipt Date: 20070928
  Transmission Date: 20080405
  Serious: Yes (Hospitalization)
  Sender: FDA-Public Use
  Company Number: PL-SHR-PL-2005-005527

PATIENT
  Age: 49 Year
  Sex: Female

DRUGS (11)
  1. BETAFERON [Suspect]
     Indication: RELAPSING-REMITTING MULTIPLE SCLEROSIS
     Dosage: 16 MIU, EVERY 2D
     Route: 058
     Dates: start: 20040715, end: 20050411
  2. BETAFERON [Suspect]
     Dosage: 16 MIU, EVERY 2D
     Route: 058
     Dates: start: 20050827
  3. PALIN [Concomitant]
     Indication: URINARY TRACT INFECTION
     Dosage: 200 MG, 4X/DAY
     Route: 048
     Dates: start: 20050228, end: 20050314
  4. GUTRON [Concomitant]
     Indication: HYPOTENSION
     Dosage: 2.5 MG, 2X/DAY
     Route: 048
     Dates: start: 20041101, end: 20050414
  5. SOLU-MEDROL [Concomitant]
     Dosage: 1 G, 1X/DAY
     Route: 042
     Dates: start: 20050224, end: 20050228
  6. RANIGAST [Concomitant]
     Indication: PROPHYLAXIS
     Dosage: .15 G, 2X/DAY
     Route: 048
     Dates: start: 20050224, end: 20050228
  7. PREMARIN [Concomitant]
     Dosage: .625 MG, 1X/DAY
     Route: 048
     Dates: start: 20050228, end: 20050414
  8. IMIPRAMINE [Concomitant]
     Indication: URINARY TRACT DISORDER
     Dosage: 10 MG, 3X/DAY
     Dates: start: 20050228, end: 20050414
  9. CITALOPRAM HYDROBROMIDE [Concomitant]
     Indication: DEPRESSION
     Dosage: 20 MG, 2X/DAY
     Route: 048
     Dates: start: 20050401, end: 20050414
  10. MIANSERIN [Concomitant]
     Indication: DEPRESSION
  11. VINPOCETINE [Concomitant]

REACTIONS (2)
  - DEEP VEIN THROMBOSIS [None]
  - DELUSION [None]
